FAERS Safety Report 23153243 (Version 1)
Quarter: 2023Q4

REPORT INFORMATION
  Report Type: Spontaneous
  Country: US (occurrence: US)
  Receive Date: 20231107
  Receipt Date: 20231107
  Transmission Date: 20240110
  Serious: Yes (Death, Hospitalization, Other)
  Sender: FDA-Public Use
  Company Number: US-AMGEN-USASP2023194479

PATIENT

DRUGS (5)
  1. FILGRASTIM [Suspect]
     Active Substance: FILGRASTIM
     Indication: Neutropenia
     Dosage: UNK
     Route: 065
  2. RITUXIMAB [Suspect]
     Active Substance: RITUXIMAB
     Indication: B-cell lymphoma
     Dosage: 375 MILLIGRAM/SQ. METER2 /DOSE) WAS GIVEN ONCE EVERY 28 DAYS/DAY 5
     Route: 065
  3. BENDAMUSTINE [Suspect]
     Active Substance: BENDAMUSTINE
     Indication: B-cell lymphoma
     Dosage: UNK
     Route: 065
     Dates: start: 2022
  4. FLUDARABINE [Suspect]
     Active Substance: FLUDARABINE PHOSPHATE
     Indication: B-cell lymphoma
     Dosage: 30 MILLIGRAM/SQ. METER/DOSE
     Route: 065
  5. CYCLOPHOSPHAMIDE [Suspect]
     Active Substance: CYCLOPHOSPHAMIDE
     Indication: B-cell lymphoma
     Dosage: 500 MILLIGRAM/SQ. METER/DOSE
     Route: 065

REACTIONS (12)
  - Multiple organ dysfunction syndrome [Fatal]
  - Shock haemorrhagic [Fatal]
  - Death [Fatal]
  - Blood product transfusion dependent [Fatal]
  - Cytokine release syndrome [Unknown]
  - Infection [Unknown]
  - Immune effector cell-associated neurotoxicity syndrome [Unknown]
  - B-cell lymphoma [Unknown]
  - Neutropenia [Unknown]
  - Tumour perforation [Unknown]
  - Thrombocytopenia [Unknown]
  - Anaemia [Unknown]
